FAERS Safety Report 9351501 (Version 4)
Quarter: 2015Q1

REPORT INFORMATION
  Report Type: Spontaneous
  Country: US (occurrence: US)
  Receive Date: 20130617
  Receipt Date: 20150312
  Transmission Date: 20150721
  Serious: Yes (Disabling, Other)
  Sender: FDA-Public Use
  Company Number: US-009507513-1202USA00421

PATIENT
  Sex: Male
  Weight: 73.47 kg

DRUGS (4)
  1. PROPECIA [Suspect]
     Active Substance: FINASTERIDE
     Indication: DIFFUSE ALOPECIA
     Dosage: 1 MG, QD
     Route: 048
     Dates: start: 20061228, end: 20090707
  2. SINGULAIR [Concomitant]
     Active Substance: MONTELUKAST SODIUM
     Dosage: 10 MG, QD
     Route: 048
  3. FLONASE [Concomitant]
     Active Substance: FLUTICASONE PROPIONATE
     Dosage: 2 SPRAYS EACH NOSTRIL DAILY
  4. PROPECIA [Suspect]
     Active Substance: FINASTERIDE
     Dosage: 1/2 DOSE
     Route: 048
     Dates: start: 20090707, end: 2010

REACTIONS (23)
  - Cognitive disorder [Not Recovered/Not Resolved]
  - Irritability [Unknown]
  - Restrictive pulmonary disease [Unknown]
  - Hypogonadism [Unknown]
  - Libido disorder [Unknown]
  - Disturbance in attention [Unknown]
  - Mood swings [Unknown]
  - Suicidal ideation [Unknown]
  - Organic erectile dysfunction [Unknown]
  - Thinking abnormal [Unknown]
  - Electrocardiogram T wave abnormal [Unknown]
  - Depression [Not Recovered/Not Resolved]
  - Adverse event [Unknown]
  - Erectile dysfunction [Unknown]
  - Sexual dysfunction [Not Recovered/Not Resolved]
  - Anxiety [Not Recovered/Not Resolved]
  - Wrong technique in drug usage process [Unknown]
  - Performance status decreased [Unknown]
  - Emotional disorder [Unknown]
  - Anhedonia [Unknown]
  - Blood testosterone decreased [Unknown]
  - Benign neoplasm [Unknown]
  - Pain in extremity [Unknown]

NARRATIVE: CASE EVENT DATE: 20071012
